FAERS Safety Report 6708134-3 (Version None)
Quarter: 2010Q2

REPORT INFORMATION
  Report Type: 
  Country: None (occurrence: None)
  Receive Date: 20100503
  Receipt Date: 20091117
  Transmission Date: 20101027
  Serious: No
  Sender: FDA-Public Use
  Company Number: US-ASTRAZENECA-2009SE27008

PATIENT
  Sex: Female
  Weight: 52.2 kg

DRUGS (4)
  1. NEXIUM [Suspect]
     Route: 048
  2. AZURETTE [Concomitant]
  3. VITAMIN D [Concomitant]
  4. CALCIUM [Concomitant]

REACTIONS (1)
  - BLOOD PRESSURE DECREASED [None]
